FAERS Safety Report 20346802 (Version 1)
Quarter: 2022Q1

REPORT INFORMATION
  Report Type: Spontaneous
  Country: IT (occurrence: IT)
  Receive Date: 20220118
  Receipt Date: 20220118
  Transmission Date: 20220423
  Serious: Yes (Other)
  Sender: FDA-Public Use
  Company Number: None

PATIENT
  Age: 80 Year
  Sex: Female

DRUGS (8)
  1. KINERET [Suspect]
     Active Substance: ANAKINRA
     Indication: Rheumatoid arthritis
     Route: 030
  2. PURINETHOL [Concomitant]
     Active Substance: MERCAPTOPURINE
     Route: 048
  3. CARDIOASPIRIN 100 MG GASTRORESISTENT TABLETS [Concomitant]
     Route: 048
  4. TACHIPIRINA 1000 MG EFFERVESCENT TABLETS [Concomitant]
     Route: 048
  5. FOLINA 5 MG SOFT CAPSULES [Concomitant]
     Route: 048
  6. ALENDRONATO ACTAVIS 70 MG TABLETS [Concomitant]
     Route: 048
  7. CHOLECALCIFEROL [Concomitant]
     Active Substance: CHOLECALCIFEROL
     Indication: Vitamin D deficiency
     Route: 048
  8. PANTORC 20 MG GASTRORESISTENT TABLETS [Concomitant]
     Route: 048

REACTIONS (1)
  - Squamous cell carcinoma [Recovered/Resolved with Sequelae]

NARRATIVE: CASE EVENT DATE: 20210722
